FAERS Safety Report 16280666 (Version 1)
Quarter: 2019Q2

REPORT INFORMATION
  Report Type: Spontaneous
  Country: FR (occurrence: FR)
  Receive Date: 20190507
  Receipt Date: 20190507
  Transmission Date: 20190711
  Serious: Yes (Hospitalization)
  Sender: FDA-Public Use
  Company Number: FR-INDIVIOR LIMITED-INDV-119337-2019

PATIENT
  Age: 36 Year
  Sex: Female

DRUGS (2)
  1. SUBUTEX [Suspect]
     Active Substance: BUPRENORPHINE HYDROCHLORIDE
     Dosage: UNK, QD (INJECTION ROUTE)
     Route: 051
  2. SUBUTEX [Suspect]
     Active Substance: BUPRENORPHINE HYDROCHLORIDE
     Indication: PRODUCT USED FOR UNKNOWN INDICATION
     Dosage: UNK, QD
     Route: 060

REACTIONS (2)
  - Product use issue [Not Recovered/Not Resolved]
  - Injection site oedema [Recovered/Resolved]

NARRATIVE: CASE EVENT DATE: 20180615
